FAERS Safety Report 21471660 (Version 1)
Quarter: 2022Q4

REPORT INFORMATION
  Report Type: Spontaneous
  Country: US (occurrence: US)
  Receive Date: 20221018
  Receipt Date: 20221018
  Transmission Date: 20230113
  Serious: No
  Sender: FDA-Public Use
  Company Number: US-AMNEAL PHARMACEUTICALS-2022-AMRX-02768

PATIENT
  Age: 54 Year

DRUGS (1)
  1. AZELASTINE HYDROCHLORIDE [Suspect]
     Active Substance: AZELASTINE HYDROCHLORIDE
     Indication: Upper-airway cough syndrome
     Dosage: 0.1%
     Route: 045
     Dates: start: 20220729, end: 20220731

REACTIONS (3)
  - COVID-19 [Recovered/Resolved]
  - Throat irritation [Recovered/Resolved]
  - Product after taste [Recovered/Resolved]

NARRATIVE: CASE EVENT DATE: 20220731
